FAERS Safety Report 5385415-X (Version None)
Quarter: 2007Q3

REPORT INFORMATION
  Report Type: 
  Country: None (occurrence: None)
  Receive Date: 20070706
  Receipt Date: 20070706
  Transmission Date: 20080115
  Serious: Yes (Hospitalization)
  Sender: FDA-Public Use
  Company Number: None

PATIENT
  Age: 62 Year
  Sex: Female

DRUGS (11)
  1. PHOSPHOSODA FLAVOR NOT SPECIFIED [Suspect]
     Indication: COLONOSCOPY
     Dosage: 45 ML;X1;PO
     Route: 048
     Dates: start: 20040825, end: 20040826
  2. PREVACID [Concomitant]
  3. LEVSIN [Concomitant]
  4. PREMARIN [Concomitant]
  5. ZOLOFT [Concomitant]
  6. SYNTHROID [Concomitant]
  7. FOSAMAX [Concomitant]
  8. LISINOPRIL HIDROCHLOROTHIAZIDE [Concomitant]
  9. ZOCOR [Concomitant]
  10. ATENOLOL [Concomitant]
  11. FLAGYL [Concomitant]

REACTIONS (3)
  - DIARRHOEA [None]
  - RENAL TUBULAR ACIDOSIS [None]
  - TETANY [None]
